FAERS Safety Report 18893383 (Version 1)
Quarter: 2021Q1

REPORT INFORMATION
  Report Type: Spontaneous
  Country: GB (occurrence: GB)
  Receive Date: 20210215
  Receipt Date: 20210215
  Transmission Date: 20210420
  Serious: Yes (Other)
  Sender: FDA-Public Use
  Company Number: GB-BAYER-2021-054103

PATIENT
  Age: 4 Year
  Sex: Female
  Weight: 27.1 kg

DRUGS (2)
  1. NEXAVAR [Suspect]
     Active Substance: SORAFENIB
     Indication: DESMOID TUMOUR
     Dosage: 200 MG/M2, UNK
     Dates: start: 20210111
  2. NEXAVAR [Suspect]
     Active Substance: SORAFENIB
     Indication: DESMOID TUMOUR
     Dosage: 100 MG/M2, UNK
     Dates: start: 20201204

REACTIONS (6)
  - Atrioventricular block [Not Recovered/Not Resolved]
  - Bradycardia [None]
  - Product use issue [None]
  - Sinus arrhythmia [None]
  - Off label use [None]
  - Product use in unapproved indication [None]

NARRATIVE: CASE EVENT DATE: 20201204
